FAERS Safety Report 19709044 (Version 1)
Quarter: 2021Q3

REPORT INFORMATION
  Report Type: Spontaneous
  Country: FR (occurrence: FR)
  Receive Date: 20210816
  Receipt Date: 20210816
  Transmission Date: 20211014
  Serious: Yes (Life-Threatening, Hospitalization)
  Sender: FDA-Public Use
  Company Number: FR-PFIZER INC-202100987491

PATIENT
  Age: 84 Year
  Sex: Male

DRUGS (6)
  1. POLARAMINE [Suspect]
     Active Substance: DEXCHLORPHENIRAMINE MALEATE
     Indication: RASH
     Dosage: 5 G, SINGLE
     Route: 042
     Dates: start: 20210617, end: 20210617
  2. AUGMENTIN [Suspect]
     Active Substance: AMOXICILLIN\CLAVULANATE POTASSIUM
     Indication: ERYSIPELAS
     Dosage: 1 G, SINGLE
     Route: 042
     Dates: start: 20210617, end: 20210617
  3. AMOXICILLINE [AMOXICILLIN] [Suspect]
     Active Substance: AMOXICILLIN
     Indication: ERYSIPELAS
     Dosage: 3 G, 1X/DAY
     Route: 048
     Dates: start: 20210608, end: 20210616
  4. GENTAMICINE [GENTAMICIN] [Suspect]
     Active Substance: GENTAMICIN
     Indication: ERYSIPELAS
     Dosage: 80 MG, SINGLE
     Route: 042
     Dates: start: 20210616, end: 20210616
  5. TAZOCILLINE [Suspect]
     Active Substance: PIPERACILLIN SODIUM\TAZOBACTAM SODIUM
     Indication: ERYSIPELAS
     Dosage: 8 G, 1X/DAY
     Route: 042
     Dates: start: 20210617, end: 20210618
  6. ROCEPHINE [Suspect]
     Active Substance: CEFTRIAXONE SODIUM
     Indication: ERYSIPELAS
     Dosage: 1 G, SINGLE
     Route: 042
     Dates: start: 20210617, end: 20210617

REACTIONS (3)
  - Off label use [Unknown]
  - SJS-TEN overlap [Recovered/Resolved]
  - Acute generalised exanthematous pustulosis [Recovered/Resolved]

NARRATIVE: CASE EVENT DATE: 20210617
